FAERS Safety Report 8319304-5 (Version None)
Quarter: 2012Q2

REPORT INFORMATION
  Report Type: 
  Country: None (occurrence: None)
  Receive Date: 20120427
  Receipt Date: 20120418
  Transmission Date: 20120825
  Serious: Yes (Hospitalization)
  Sender: FDA-Public Use
  Company Number: CN-ASTRAZENECA-2012SE25418

PATIENT
  Age: 67 Year
  Sex: Female

DRUGS (4)
  1. PULMICORT [Suspect]
     Indication: ASTHMA
     Dosage: 6 SPRAYS A DAY
     Route: 055
  2. DYPHYLLINE 200MG TAB [Concomitant]
     Indication: ASTHMA
     Route: 048
  3. PULMICORT [Suspect]
     Dosage: 2 SPRAYS A DAY
     Route: 055
  4. TULOBUTEROL [Concomitant]
     Indication: ASTHMA
     Route: 048

REACTIONS (3)
  - ASTHMA [None]
  - DRUG DOSE OMISSION [None]
  - INTENTIONAL DRUG MISUSE [None]
